FAERS Safety Report 5194895-4 (Version None)
Quarter: 2006Q4

REPORT INFORMATION
  Report Type: 
  Country: None (occurrence: None)
  Receive Date: 20061229
  Receipt Date: 20061020
  Transmission Date: 20070319
  Serious: Yes (Other)
  Sender: FDA-Public Use
  Company Number: US-BRISTOL-MYERS SQUIBB COMPANY-13549431

PATIENT
  Age: 46 Year
  Sex: Female

DRUGS (4)
  1. SPRYCEL [Suspect]
     Indication: CHRONIC MYELOID LEUKAEMIA
     Dates: start: 20061001
  2. MEDROL [Concomitant]
  3. PROTONIX [Concomitant]
  4. OXYCODONE HCL [Concomitant]

REACTIONS (1)
  - RASH ERYTHEMATOUS [None]
